FAERS Safety Report 4914910-X (Version None)
Quarter: 2006Q1

REPORT INFORMATION
  Report Type: 
  Country: None (occurrence: None)
  Receive Date: 20060217
  Receipt Date: 20060125
  Transmission Date: 20060701
  Serious: Yes (Life-Threatening)
  Sender: FDA-Public Use
  Company Number: 2006AP00455

PATIENT
  Age: 11483 Day
  Sex: Male
  Weight: 57 kg

DRUGS (5)
  1. XYLOCAINE W/ EPINEPHRINE [Suspect]
     Indication: INFILTRATION ANAESTHESIA
     Dosage: 1% EPINEPHRINE
     Route: 050
     Dates: start: 20050224, end: 20050224
  2. DEPAS [Concomitant]
     Indication: ANXIETY DISORDER
     Route: 048
  3. ATROPINE SULFATE [Concomitant]
     Indication: ANAESTHETIC PREMEDICATION
     Route: 030
     Dates: start: 20050224, end: 20050224
  4. ATARAX [Concomitant]
     Indication: ANAESTHETIC PREMEDICATION
     Route: 030
     Dates: start: 20050224, end: 20050224
  5. SOSEGON [Concomitant]
     Indication: ANAESTHETIC PREMEDICATION
     Route: 030
     Dates: start: 20050224, end: 20050224

REACTIONS (11)
  - BLOOD PRESSURE INCREASED [None]
  - CARDIAC FAILURE [None]
  - CYANOSIS [None]
  - LOSS OF CONSCIOUSNESS [None]
  - METABOLIC ACIDOSIS [None]
  - PULMONARY OEDEMA [None]
  - PULSE ABSENT [None]
  - PUPIL FIXED [None]
  - STRESS [None]
  - VENTRICULAR FIBRILLATION [None]
  - VENTRICULAR TACHYCARDIA [None]
